FAERS Safety Report 14970766 (Version 1)
Quarter: 2018Q2

REPORT INFORMATION
  Report Type: Spontaneous
  Country: US (occurrence: US)
  Receive Date: 20180514
  Receipt Date: 20180514
  Transmission Date: 20180711
  Serious: Yes (Disabling)
  Sender: FDA-Public Use
  Company Number: None

PATIENT
  Age: 61 Year
  Sex: Male
  Weight: 114.75 kg

DRUGS (17)
  1. MIRABEGRON [Suspect]
     Active Substance: MIRABEGRON
     Indication: HYPERTONIC BLADDER
     Dosage: ?          QUANTITY:90 TABLET(S);?
     Route: 048
     Dates: start: 20170221, end: 20170301
  2. CLINDAMYCIN. [Concomitant]
     Active Substance: CLINDAMYCIN
  3. TEA [Concomitant]
     Active Substance: TEA LEAF
  4. MIRABEGRON [Concomitant]
     Active Substance: MIRABEGRON
  5. LISINOPRIL. [Concomitant]
     Active Substance: LISINOPRIL
  6. OMEPREZOLE [Concomitant]
     Active Substance: OMEPRAZOLE
  7. CHLORHEXIDINE [Concomitant]
     Active Substance: CHLORHEXIDINE
  8. CITALOPRAM HYDROBROMIDED [Suspect]
     Active Substance: CITALOPRAM HYDROBROMIDE
     Indication: DEPRESSION
     Dosage: ?          QUANTITY:30 TABLET(S);?
     Route: 048
     Dates: start: 20061220, end: 20070107
  9. ATENELOL [Concomitant]
     Active Substance: ATENOLOL
  10. AZELASTINE. [Concomitant]
     Active Substance: AZELASTINE HYDROCHLORIDE
  11. CHOLECALCIFEROL [Concomitant]
     Active Substance: CHOLECALCIFEROL
  12. FLUTICASONE. [Concomitant]
     Active Substance: FLUTICASONE
  13. CARBOMETHYLCELLULOSE [Concomitant]
  14. ASPIRIN. [Concomitant]
     Active Substance: ASPIRIN
  15. VITAMIN D [Concomitant]
     Active Substance: CHOLECALCIFEROL
  16. DEXTRAN [Concomitant]
     Active Substance: DEXTRAN
  17. ROSUVASTATIN. [Concomitant]
     Active Substance: ROSUVASTATIN

REACTIONS (5)
  - Insomnia [None]
  - Heart rate increased [None]
  - Neuralgia [None]
  - Device issue [None]
  - Anxiety [None]

NARRATIVE: CASE EVENT DATE: 20170301
